FAERS Safety Report 5316735-2 (Version None)
Quarter: 2007Q2

REPORT INFORMATION
  Report Type: 
  Country: None (occurrence: None)
  Receive Date: 20070504
  Receipt Date: 20070425
  Transmission Date: 20071010
  Serious: Yes (Hospitalization)
  Sender: FDA-Public Use
  Company Number: 2007AP02492

PATIENT
  Age: 23834 Day
  Sex: Male
  Weight: 79 kg

DRUGS (7)
  1. IRESSA [Suspect]
     Indication: NON-SMALL CELL LUNG CANCER
     Route: 048
     Dates: start: 20070308
  2. GEMZAR [Concomitant]
     Dates: end: 20070223
  3. CLEXANE [Concomitant]
     Indication: ANTICOAGULANT THERAPY
     Route: 058
     Dates: start: 20070419
  4. VALPROATE SODIUM [Concomitant]
     Indication: CONVULSION
     Dates: start: 20070215
  5. VALPROATE SODIUM [Concomitant]
     Dates: start: 20070308
  6. DIAMICRON MR [Concomitant]
     Indication: DIABETES MELLITUS
  7. WARFARIN [Concomitant]
     Dates: start: 20070412, end: 20070419

REACTIONS (1)
  - PNEUMONIA [None]
